FAERS Safety Report 7704960-2 (Version None)
Quarter: 2011Q3

REPORT INFORMATION
  Report Type: 
  Country: None (occurrence: None)
  Receive Date: 20110823
  Receipt Date: 20110819
  Transmission Date: 20111222
  Serious: No
  Sender: FDA-Public Use
  Company Number: US-PFIZER INC-2011192656

PATIENT
  Sex: Female

DRUGS (5)
  1. PANTOPRAZOLE [Suspect]
     Indication: GASTROOESOPHAGEAL REFLUX DISEASE
     Dosage: 40 MG, 1X/DAY
     Dates: start: 20110801, end: 20110801
  2. PANTOPRAZOLE [Suspect]
     Indication: BARRETT'S OESOPHAGUS
  3. PROTONIX [Concomitant]
     Indication: GASTROOESOPHAGEAL REFLUX DISEASE
     Dosage: UNK
     Dates: end: 20110801
  4. PROTONIX [Concomitant]
     Indication: BARRETT'S OESOPHAGUS
  5. PREMARIN [Suspect]
     Indication: HOT FLUSH
     Dosage: UNK
     Dates: end: 20110801

REACTIONS (5)
  - HYPERHIDROSIS [None]
  - PRURITUS [None]
  - DRUG INEFFECTIVE [None]
  - HOT FLUSH [None]
  - HEADACHE [None]
